FAERS Safety Report 17261122 (Version 1)
Quarter: 2019Q4

REPORT INFORMATION
  Report Type: Spontaneous
  Country: US (occurrence: US)
  Receive Date: 20191217
  Receipt Date: 20191217
  Transmission Date: 20200122
  Serious: Yes (Other)
  Sender: FDA-Public Use
  Company Number: None

PATIENT
  Age: 77 Year
  Sex: Female
  Weight: 73.48 kg

DRUGS (2)
  1. VRAYLAR [Suspect]
     Active Substance: CARIPRAZINE
     Indication: FEAR
  2. VRAYLAR [Suspect]
     Active Substance: CARIPRAZINE
     Indication: EMOTIONAL DISORDER
     Dosage: ?          QUANTITY:1 DF DOSAGE FORM;?
     Route: 048
     Dates: start: 20191028, end: 20191030

REACTIONS (5)
  - Nausea [None]
  - Chills [None]
  - Headache [None]
  - Eating disorder [None]
  - Insomnia [None]

NARRATIVE: CASE EVENT DATE: 20191028
